FAERS Safety Report 6266085-5 (Version None)
Quarter: 2009Q3

REPORT INFORMATION
  Report Type: 
  Country: None (occurrence: None)
  Receive Date: 20090713
  Receipt Date: 20090701
  Transmission Date: 20100115
  Serious: Yes (Other)
  Sender: FDA-Public Use
  Company Number: TW-ELI_LILLY_AND_COMPANY-TW200906000318

PATIENT
  Sex: Male

DRUGS (1)
  1. CYMBALTA [Suspect]
     Indication: DEPRESSION
     Dosage: 30 MG, 3/D
     Route: 048
     Dates: start: 20090101, end: 20090101

REACTIONS (3)
  - AGEUSIA [None]
  - HYPOAESTHESIA [None]
  - SJOGREN'S SYNDROME [None]
